FAERS Safety Report 7553393-0 (Version None)
Quarter: 2011Q2

REPORT INFORMATION
  Report Type: 
  Country: None (occurrence: None)
  Receive Date: 20110617
  Receipt Date: 20110606
  Transmission Date: 20111010
  Serious: Yes (Other)
  Sender: FDA-Public Use
  Company Number: JP-CELGENEUS-087-21880-10120623

PATIENT
  Sex: Female

DRUGS (17)
  1. FAMOTIDINE D [Concomitant]
     Dosage: 20 MILLIGRAM
     Route: 048
     Dates: start: 20101118, end: 20110112
  2. MAGNESIUM SULFATE [Concomitant]
     Indication: PROPHYLAXIS
     Dosage: 1980 MILLIGRAM
     Route: 048
     Dates: start: 20100916, end: 20101013
  3. GOSHA-JINKI-GAN [Concomitant]
     Dosage: 7.5 GRAM
     Route: 048
     Dates: start: 20101231, end: 20110112
  4. DEXAMETHASONE [Suspect]
     Dosage: 10 MILLIGRAM
     Route: 048
     Dates: start: 20101123, end: 20101126
  5. METHYCOOL [Concomitant]
     Dosage: 1.5 MILLIGRAM
     Route: 048
     Dates: start: 20101118, end: 20110112
  6. REVLIMID [Suspect]
     Indication: MULTIPLE MYELOMA
     Dosage: 15 MILLIGRAM
     Route: 048
     Dates: start: 20100916, end: 20101006
  7. REVLIMID [Suspect]
     Dosage: 5 MILLIGRAM
     Route: 048
     Dates: start: 20110106, end: 20110112
  8. LASIX [Concomitant]
     Dosage: 20 MILLIGRAM
     Route: 048
     Dates: start: 20101118, end: 20110112
  9. SOLON [Concomitant]
     Dosage: 200 MILLIGRAM
     Route: 048
     Dates: start: 20101118, end: 20110112
  10. METHYCOOL [Concomitant]
     Dosage: 1.5 MILLIGRAM
     Route: 048
     Dates: start: 20100916, end: 20101013
  11. DEXAMETHASONE [Suspect]
     Indication: MULTIPLE MYELOMA
     Dosage: 20 MILLIGRAM
     Route: 048
     Dates: start: 20100916, end: 20100919
  12. SOLON [Concomitant]
     Indication: PROPHYLAXIS
     Dosage: 200 MILLIGRAM
     Route: 048
     Dates: start: 20100916, end: 20101013
  13. FAMOTIDINE D [Concomitant]
     Indication: PROPHYLAXIS
     Dosage: 20 MILLIGRAM
     Route: 048
     Dates: start: 20100916, end: 20101013
  14. MAGNESIUM SULFATE [Concomitant]
     Dosage: 1980 MILLIGRAM
     Route: 048
     Dates: start: 20101118, end: 20110112
  15. LASIX [Concomitant]
     Indication: HYPERTENSION
     Dosage: 20 MILLIGRAM
     Route: 048
     Dates: start: 20100916, end: 20101013
  16. REVLIMID [Suspect]
     Dosage: 10 MILLIGRAM
     Route: 048
     Dates: start: 20101118, end: 20101124
  17. REVLIMID [Suspect]
     Dosage: 10 MILLIGRAM
     Route: 048
     Dates: start: 20101223, end: 20110105

REACTIONS (7)
  - DIARRHOEA [None]
  - URTICARIA [None]
  - NEUTROPENIA [None]
  - ARRHYTHMIA [None]
  - THROMBOCYTOPENIA [None]
  - INFECTION [None]
  - RASH [None]
